FAERS Safety Report 24684871 (Version 1)
Quarter: 2024Q4

REPORT INFORMATION
  Report Type: Spontaneous
  Country: AU (occurrence: AU)
  Receive Date: 20241202
  Receipt Date: 20241202
  Transmission Date: 20250115
  Serious: Yes (Other)
  Sender: PIRAMAL
  Company Number: AU-PIRAMAL CRITICAL CARE LIMITED-2024-PPL-000881

PATIENT

DRUGS (13)
  1. SEVOFLURANE [Suspect]
     Active Substance: SEVOFLURANE
     Indication: Maintenance of anaesthesia
     Dosage: AT AN EXPIRED VOLUME OF 0.7-1.4%.
  2. PROPOFOL [Suspect]
     Active Substance: PROPOFOL
     Indication: Anaesthesia
     Dosage: 200 MILLIGRAM
  3. PROPOFOL [Suspect]
     Active Substance: PROPOFOL
     Indication: Maintenance of anaesthesia
     Dosage: 1.5-2 ?G/ML
  4. PROPOFOL [Suspect]
     Active Substance: PROPOFOL
     Dosage: 4 ?G/ML
  5. REMIFENTANIL [Suspect]
     Active Substance: REMIFENTANIL
     Indication: Anaesthesia
     Dosage: 0.2 ?G/KG/MIN
  6. ROCURONIUM [Suspect]
     Active Substance: ROCURONIUM BROMIDE
     Indication: Anaesthesia
     Dosage: 50 MILLIGRAM
  7. DEXAMETHASONE [Suspect]
     Active Substance: DEXAMETHASONE
     Indication: Induction of anaesthesia
     Dosage: 8 MG
  8. COCAINE [Concomitant]
     Active Substance: COCAINE
     Indication: Local anaesthesia
     Dosage: 2 MILLILITER
  9. EPINEPHRINE [Concomitant]
     Active Substance: EPINEPHRINE
     Indication: Local anaesthesia
     Dosage: 1:1000
  10. SALINE                             /00075401/ [Concomitant]
     Indication: Local anaesthesia
     Dosage: 8 MILLILITER
  11. LIGNOSPAN                          /00033402/ [Concomitant]
     Dosage: 2.2 ML
  12. DESMOPRESSIN [Concomitant]
     Active Substance: DESMOPRESSIN
     Indication: Urine output decreased
     Dosage: 1 MICROGRAM
     Route: 058
  13. DESMOPRESSIN [Concomitant]
     Active Substance: DESMOPRESSIN
     Dosage: 1 MICROGRAM
     Route: 058

REACTIONS (1)
  - Nephrogenic diabetes insipidus [Unknown]
